FAERS Safety Report 9731901 (Version 2)
Quarter: 2014Q1

REPORT INFORMATION
  Report Type: Spontaneous
  Country: US (occurrence: US)
  Receive Date: 20131205
  Receipt Date: 20140219
  Transmission Date: 20141002
  Serious: Yes (Other)
  Sender: FDA-Public Use
  Company Number: US-BAYER-2013-147005

PATIENT
  Age: 38 Year
  Sex: Female

DRUGS (1)
  1. MIRENA [Suspect]
     Indication: CONTRACEPTION
     Dosage: 20 MCG/24HR, CONT
     Route: 015
     Dates: start: 20091001

REACTIONS (8)
  - Haemorrhage in pregnancy [None]
  - Pregnancy with contraceptive device [None]
  - Drug ineffective [None]
  - Device expulsion [None]
  - Device dislocation [None]
  - Device difficult to use [None]
  - Menstruation irregular [None]
  - Complication of pregnancy [None]
